FAERS Safety Report 26112277 (Version 1)
Quarter: 2025Q4

REPORT INFORMATION
  Report Type: Spontaneous
  Country: US (occurrence: None)
  Receive Date: 20251202
  Receipt Date: 20251202
  Transmission Date: 20260118
  Serious: No
  Sender: FDA-CTU
  Company Number: None

PATIENT
  Age: 81 Year
  Sex: Male
  Weight: 55.1 kg

DRUGS (3)
  1. DARATUMUMAB\HYALURONIDASE-FIHJ [Suspect]
     Active Substance: DARATUMUMAB\HYALURONIDASE-FIHJ
     Dates: end: 20240710
  2. DEXAMETHASONE [Suspect]
     Active Substance: DEXAMETHASONE
     Dates: end: 20240710
  3. LENALIDOMIDE [Suspect]
     Active Substance: LENALIDOMIDE
     Dosage: OTHER FREQUENCY : DO NOT HAVE A PILL COUNT OR PILL DIARY TO CONFIRM TOTAL DOSE ADMINISTERED.  BASED ON PATIENT REPORT ;?
     Dates: end: 20240708

REACTIONS (2)
  - Cytopenia [None]
  - Therapy interrupted [None]

NARRATIVE: CASE EVENT DATE: 20220714
